FAERS Safety Report 13507133 (Version 1)
Quarter: 2017Q2

REPORT INFORMATION
  Report Type: Spontaneous
  Country: US (occurrence: US)
  Receive Date: 20170502
  Receipt Date: 20170502
  Transmission Date: 20170830
  Serious: Yes (Disabling, Other)
  Sender: FDA-Public Use
  Company Number: None

PATIENT
  Age: 15 Year
  Sex: Female
  Weight: 56.25 kg

DRUGS (7)
  1. BENEFIBER [Concomitant]
     Active Substance: STARCH, WHEAT
  2. PROZAC [Concomitant]
     Active Substance: FLUOXETINE HYDROCHLORIDE
  3. FLONASE [Concomitant]
     Active Substance: FLUTICASONE PROPIONATE
  4. PURELAX [Concomitant]
     Active Substance: POLYETHYLENE GLYCOL 3350
  5. PURELAX [Suspect]
     Active Substance: POLYETHYLENE GLYCOL 3350
     Indication: CONSTIPATION
     Route: 048
  6. SENNA [Concomitant]
     Active Substance: SENNA LEAF\SENNOSIDES\SENNOSIDES A AND B
  7. ZONEGRAM [Concomitant]

REACTIONS (3)
  - Depression [None]
  - Anxiety [None]
  - Seizure [None]

NARRATIVE: CASE EVENT DATE: 20170424
